FAERS Safety Report 9524162 (Version 1)
Quarter: 2013Q1

REPORT INFORMATION
  Report Type: Spontaneous
  Country: US (occurrence: None)
  Receive Date: 20130305
  Receipt Date: 20130305
  Transmission Date: 20140127
  Serious: Yes (Disabling, Other)
  Sender: FDA-Public Use
  Company Number: 163-21880-12021016

PATIENT
  Age: 63 Year
  Sex: Male

DRUGS (9)
  1. REVLIMID (LENALIDOMIDE) (CAPSULES) [Suspect]
     Indication: PLASMA CELL MYELOMA
     Dosage: 25 MG, 21/28 DAYS, PO
     Route: 048
     Dates: start: 201012, end: 20120126
  2. DEXAMETHASONE (DEXAMETHASONE) (TABLETS) [Concomitant]
  3. LEVOFLOXACIN (LEVOFLOXACIN) (TABLETS) [Concomitant]
  4. WARFARIN SODIUM (WARFARIN SODIUM) (TABLETS) [Concomitant]
  5. GLYBURIDE (GLIBENCLAMIDE) (TABLETS)? [Concomitant]
  6. GABAPENTIN (GABAPENTIN) (CAPSULES) [Concomitant]
  7. METFORMIN (METFORMIN) (TABLETS) [Concomitant]
  8. BARACLUDE (ENTECAVIR) (TABLETS) [Concomitant]
  9. ACYCLOVIR (ACICLOVIR ) (TABLETS) [Concomitant]

REACTIONS (1)
  - Full blood count decreased [None]
